FAERS Safety Report 24349585 (Version 2)
Quarter: 2024Q4

REPORT INFORMATION
  Report Type: Spontaneous
  Country: US (occurrence: US)
  Receive Date: 20240923
  Receipt Date: 20241031
  Transmission Date: 20250115
  Serious: Yes (Other)
  Sender: BLUEPRINT MEDICINES
  Company Number: US-Blueprint Medicines Corporation-4803

PATIENT
  Sex: Female

DRUGS (2)
  1. AYVAKIT [Suspect]
     Active Substance: AVAPRITINIB
     Indication: Malignant mast cell neoplasm
     Route: 065
     Dates: start: 20220205
  2. AYVAKIT [Suspect]
     Active Substance: AVAPRITINIB
     Route: 065

REACTIONS (6)
  - Thrombocytopenia [Unknown]
  - Oedema [Unknown]
  - Contusion [Recovered/Resolved]
  - Swelling [Recovered/Resolved]
  - Photosensitivity reaction [Not Recovered/Not Resolved]
  - Off label use [Unknown]
